FAERS Safety Report 8881430 (Version 1)
Quarter: 2012Q4

REPORT INFORMATION
  Report Type: 
  Country: US (occurrence: US)
  Receive Date: 20121102
  Receipt Date: 20121102
  Transmission Date: 20130627
  Serious: No
  Sender: FDA-Public Use
  Company Number: US-009507513-1210USA012318

PATIENT
  Age: 62 Year
  Sex: Female

DRUGS (2)
  1. FOSAMAX [Suspect]
     Route: 048
  2. EVISTA [Suspect]

REACTIONS (2)
  - Adverse drug reaction [Unknown]
  - Drug interaction [Unknown]
